FAERS Safety Report 5016266-3 (Version None)
Quarter: 2006Q2

REPORT INFORMATION
  Report Type: 
  Country: None (occurrence: None)
  Receive Date: 20060414
  Receipt Date: 20060123
  Transmission Date: 20061013
  Serious: No
  Sender: FDA-Public Use
  Company Number: 2006SP000404

PATIENT
  Sex: Female

DRUGS (3)
  1. LUNESTA [Suspect]
     Dosage: 3 MG;HS;ORAL
     Route: 048
     Dates: start: 20051101, end: 20060113
  2. EFFEXOR [Suspect]
     Dates: start: 20060114, end: 20060101
  3. CYMBALTA [Suspect]
     Dates: start: 20060114, end: 20060101

REACTIONS (1)
  - MUSCLE TWITCHING [None]
